FAERS Safety Report 15546886 (Version 9)
Quarter: 2021Q3

REPORT INFORMATION
  Report Type: Other
  Country: CA (occurrence: CA)
  Receive Date: 20181024
  Receipt Date: 20210817
  Transmission Date: 20211014
  Serious: Yes (Hospitalization, Other)
  Sender: FDA-Public Use
  Company Number: CA-GLENMARK PHARMACEUTICALS-2018GMK037856

PATIENT

DRUGS (19)
  1. DOCUSATE SODIUM. [Suspect]
     Active Substance: DOCUSATE SODIUM
     Indication: PRODUCT USED FOR UNKNOWN INDICATION
     Dosage: UNK
     Route: 065
  2. INSULIN [Suspect]
     Active Substance: INSULIN NOS
     Indication: PRODUCT USED FOR UNKNOWN INDICATION
     Dosage: UNK
     Route: 048
  3. LEVOTHYROXINE. [Suspect]
     Active Substance: LEVOTHYROXINE
     Indication: PRODUCT USED FOR UNKNOWN INDICATION
     Dosage: UNK
     Route: 065
  4. DOMPERIDONE [Suspect]
     Active Substance: DOMPERIDONE
     Indication: BREAST FEEDING
     Dosage: 20 MEQ, UNK
     Route: 065
  5. IRON SULPHATE [Suspect]
     Active Substance: FERROUS SULFATE ANHYDROUS
     Indication: PRODUCT USED FOR UNKNOWN INDICATION
     Dosage: UNK
     Route: 065
  6. CYCLOBENZAPRINE. [Suspect]
     Active Substance: CYCLOBENZAPRINE
     Indication: PRODUCT USED FOR UNKNOWN INDICATION
     Route: 065
  7. CYCLOBENZAPRINE. [Suspect]
     Active Substance: CYCLOBENZAPRINE
     Indication: PRODUCT USED FOR UNKNOWN INDICATION
     Dosage: UNK
     Route: 064
  8. CONCERTA [Suspect]
     Active Substance: METHYLPHENIDATE HYDROCHLORIDE
     Indication: ATTENTION DEFICIT HYPERACTIVITY DISORDER
     Dosage: 36 MG, OD
     Route: 065
  9. DOMPERIDONE [Suspect]
     Active Substance: DOMPERIDONE
     Indication: LACTATION STIMULATION THERAPY
     Dosage: 20 MG, QID
     Route: 065
  10. DOMPERIDONE [Suspect]
     Active Substance: DOMPERIDONE
     Indication: LACTATION DISORDER
     Dosage: 20 MILLIGRAM, QID (1 EVERY 6 HOURS)
     Route: 065
  11. INSULIN [Suspect]
     Active Substance: INSULIN NOS
     Indication: PRODUCT USED FOR UNKNOWN INDICATION
     Dosage: UNK
     Route: 048
  12. URSODEOXYCHOLIC ACID [Suspect]
     Active Substance: URSODIOL
     Indication: PRODUCT USED FOR UNKNOWN INDICATION
     Dosage: UNK
     Route: 065
  13. OMEPRAZOLE. [Suspect]
     Active Substance: OMEPRAZOLE
     Indication: PRODUCT USED FOR UNKNOWN INDICATION
     Dosage: UNK
     Route: 048
  14. DULOXETINE TEVA [Suspect]
     Active Substance: DULOXETINE HYDROCHLORIDE
     Indication: DEPRESSION
     Dosage: 90 MILLIGRAM, OD
     Route: 065
  15. DOCUSATE SODIUM. [Suspect]
     Active Substance: DOCUSATE SODIUM
     Indication: PRODUCT USED FOR UNKNOWN INDICATION
     Dosage: UNK
     Route: 065
  16. METHYLPHENIDATE HYDROCHLORIDE. [Suspect]
     Active Substance: METHYLPHENIDATE HYDROCHLORIDE
     Indication: ATTENTION DEFICIT HYPERACTIVITY DISORDER
     Dosage: 36 MILLIGRAM, OD
     Route: 065
  17. URSODEOXYCHOLIC ACID [Suspect]
     Active Substance: URSODIOL
     Dosage: UNK (FORMULATION: TABLET)
     Route: 065
  18. LEVOTHYROXINE. [Suspect]
     Active Substance: LEVOTHYROXINE
     Indication: PRODUCT USED FOR UNKNOWN INDICATION
     Dosage: UNK
     Route: 065
  19. FERROUS SULFATE. [Suspect]
     Active Substance: FERROUS SULFATE
     Indication: PRODUCT USED FOR UNKNOWN INDICATION
     Dosage: UNK
     Route: 065

REACTIONS (9)
  - Exposure via breast milk [Unknown]
  - Blood pressure increased [Unknown]
  - Hypothyroidism [Unknown]
  - Exposure during pregnancy [Unknown]
  - Off label use [Unknown]
  - Lactation disorder [Unknown]
  - Pre-eclampsia [Unknown]
  - Maternal exposure during breast feeding [Unknown]
  - Cholestasis [Unknown]
